FAERS Safety Report 22300260 (Version 1)
Quarter: 2023Q2

REPORT INFORMATION
  Report Type: Spontaneous
  Country: CN (occurrence: CN)
  Receive Date: 20230509
  Receipt Date: 20230509
  Transmission Date: 20230722
  Serious: Yes (Other)
  Sender: FDA-Public Use
  Company Number: CN-BAUSCH-BL-2019-000610

PATIENT
  Age: 69 Year
  Sex: Male

DRUGS (11)
  1. CHLORAMPHENICOL [Suspect]
     Active Substance: CHLORAMPHENICOL
     Indication: Foreign body sensation in eyes
     Route: 047
     Dates: start: 2009
  2. CHLORAMPHENICOL [Suspect]
     Active Substance: CHLORAMPHENICOL
     Indication: Eye disorder
  3. CHLORAMPHENICOL [Suspect]
     Active Substance: CHLORAMPHENICOL
     Indication: Conjunctivitis
  4. LEVOFLOXACIN HYDROCHLORIDE [Suspect]
     Active Substance: LEVOFLOXACIN HYDROCHLORIDE
     Indication: Conjunctivitis
     Dosage: TO THE EYES, FIVE TIMES A DAY
     Route: 047
     Dates: start: 2009, end: 2009
  5. LEVOFLOXACIN HYDROCHLORIDE [Suspect]
     Active Substance: LEVOFLOXACIN HYDROCHLORIDE
     Route: 047
     Dates: start: 2014
  6. CROMOLYN SODIUM [Suspect]
     Active Substance: CROMOLYN SODIUM
     Indication: Conjunctivitis
     Route: 047
     Dates: start: 2009
  7. TOBRAMYCIN [Suspect]
     Active Substance: TOBRAMYCIN
     Indication: Conjunctivitis
     Dosage: FIVE TIMES A DAY
     Route: 047
  8. ERYTHROMYCIN [Suspect]
     Active Substance: ERYTHROMYCIN
     Indication: Conjunctivitis
     Dosage: EVERY NIGHT
     Dates: start: 2009
  9. ERYTHROMYCIN [Suspect]
     Active Substance: ERYTHROMYCIN
     Dosage: RESTARTED AGAIN; EVERY NIGHT
     Route: 047
     Dates: start: 2009, end: 2009
  10. TOBRAMYCIN AND DEXAMETHASONE [Suspect]
     Active Substance: DEXAMETHASONE\TOBRAMYCIN
     Indication: Conjunctivitis
     Dosage: EYE DROPS
     Route: 047
     Dates: start: 2009
  11. CORTISONE [Suspect]
     Active Substance: CORTISONE
     Indication: Conjunctivitis
     Route: 047
     Dates: start: 2009

REACTIONS (3)
  - Conjunctivitis [Recovered/Resolved]
  - Prescription drug used without a prescription [Recovered/Resolved]
  - Drug ineffective [Recovered/Resolved]

NARRATIVE: CASE EVENT DATE: 20090101
